FAERS Safety Report 9227748 (Version 1)
Quarter: 2013Q2

REPORT INFORMATION
  Report Type: Spontaneous
  Country: US (occurrence: US)
  Receive Date: 20130412
  Receipt Date: 20130412
  Transmission Date: 20140414
  Serious: No
  Sender: FDA-Public Use
  Company Number: US-MYLANLABS-2012S1023777

PATIENT
  Age: 42 Year
  Sex: Male
  Weight: 167.83 kg

DRUGS (2)
  1. DIVALPROEX SODIUM DELAYED-RELEASE TABLETS USP [Suspect]
     Indication: EPILEPSY
     Route: 048
     Dates: start: 20121028
  2. LISINOPRIL [Concomitant]
     Indication: BLOOD PRESSURE INCREASED

REACTIONS (2)
  - Decreased appetite [Not Recovered/Not Resolved]
  - Fatigue [Not Recovered/Not Resolved]
